FAERS Safety Report 7656769-6 (Version None)
Quarter: 2011Q3

REPORT INFORMATION
  Report Type: 
  Country: None (occurrence: None)
  Receive Date: 20110804
  Receipt Date: 20110802
  Transmission Date: 20111222
  Serious: Yes (Other)
  Sender: FDA-Public Use
  Company Number: US-PFIZER INC-2011176757

PATIENT
  Age: 51 Year
  Sex: Female

DRUGS (2)
  1. GEODON [Suspect]
     Dosage: 40 MG, 2X/DAY
     Dates: start: 20110720, end: 20110725
  2. GEODON [Suspect]
     Dosage: 20 MG, 2X/DAY
     Dates: start: 20110712, end: 20110719

REACTIONS (6)
  - LIP SWELLING [None]
  - CHILLS [None]
  - TREMOR [None]
  - PRURITUS [None]
  - DRY MOUTH [None]
  - MEMORY IMPAIRMENT [None]
